FAERS Safety Report 7830370-3 (Version None)
Quarter: 2011Q4

REPORT INFORMATION
  Report Type: 
  Country: None (occurrence: None)
  Receive Date: 20111021
  Receipt Date: 20111017
  Transmission Date: 20120403
  Serious: Yes (Hospitalization, Other)
  Sender: FDA-Public Use
  Company Number: US-AMGEN-USASP2011046413

PATIENT
  Age: 38 Year
  Sex: Female
  Weight: 136 kg

DRUGS (4)
  1. PLAQUENIL [Concomitant]
     Dosage: 1 MG, Q12H
     Dates: start: 20070101
  2. ENBREL [Suspect]
     Indication: ARTHRITIS
     Dosage: 50 MG, QWK
     Dates: start: 20100217, end: 20100428
  3. ENBREL [Suspect]
     Dosage: 50 MG, QWK
     Dates: start: 20100301, end: 20100501
  4. ENBREL [Suspect]
     Indication: PSORIATIC ARTHROPATHY
     Dosage: 50 MG, QWK
     Dates: start: 20110919

REACTIONS (12)
  - COMPRESSION FRACTURE [None]
  - PAIN [None]
  - SWELLING [None]
  - ALCOHOL USE [None]
  - MUSCULAR WEAKNESS [None]
  - ASTHENIA [None]
  - INSOMNIA [None]
  - PARAESTHESIA [None]
  - ALOPECIA [None]
  - NERVE INJURY [None]
  - ASTHMA [None]
  - INJECTION SITE HAEMATOMA [None]
